FAERS Safety Report 18348484 (Version 1)
Quarter: 2020Q4

REPORT INFORMATION
  Report Type: Spontaneous
  Country: US (occurrence: US)
  Receive Date: 20201005
  Receipt Date: 20201005
  Transmission Date: 20210114
  Serious: Yes (Other)
  Sender: FDA-Public Use
  Company Number: None

PATIENT
  Age: 65 Year
  Sex: Female

DRUGS (1)
  1. TYMLOS [Suspect]
     Active Substance: ABALOPARATIDE
     Indication: OSTEOPOROSIS
     Route: 058
     Dates: start: 20200201, end: 20200924

REACTIONS (5)
  - Heart rate increased [None]
  - Vomiting [None]
  - Blood urine present [None]
  - Hepatic enzyme increased [None]
  - Back pain [None]

NARRATIVE: CASE EVENT DATE: 20200901
